FAERS Safety Report 15319974 (Version 1)
Quarter: 2018Q3

REPORT INFORMATION
  Report Type: Spontaneous
  Country: US (occurrence: US)
  Receive Date: 20180827
  Receipt Date: 20180827
  Transmission Date: 20181010
  Serious: Yes (Other)
  Sender: FDA-Public Use
  Company Number: US-TEVA-814656USA

PATIENT
  Sex: Male

DRUGS (1)
  1. GLIPIZIDE W/METFORMIN [Suspect]
     Active Substance: GLIPIZIDE\METFORMIN HYDROCHLORIDE
     Indication: TYPE 2 DIABETES MELLITUS
     Dosage: 5MG?500MG
     Route: 065
     Dates: start: 20170917, end: 20171004

REACTIONS (1)
  - Blood glucose increased [Recovering/Resolving]

NARRATIVE: CASE EVENT DATE: 201709
